FAERS Safety Report 7091314-8 (Version None)
Quarter: 2010Q4

REPORT INFORMATION
  Report Type: 
  Country: None (occurrence: None)
  Receive Date: 20101105
  Receipt Date: 20101105
  Transmission Date: 20110411
  Serious: Yes (Hospitalization)
  Sender: FDA-Public Use
  Company Number: None

PATIENT
  Age: 45 Year
  Sex: Female
  Weight: 59.8748 kg

DRUGS (1)
  1. ACTONEL [Suspect]
     Indication: OSTEOPENIA
     Dosage: 150MG ONCE A MONTH PO
     Route: 048
     Dates: start: 20100813, end: 20100813

REACTIONS (14)
  - ABASIA [None]
  - BACK PAIN [None]
  - BONE PAIN [None]
  - CHILLS [None]
  - DRUG HYPERSENSITIVITY [None]
  - DYSPEPSIA [None]
  - INFLAMMATION [None]
  - MUSCLE SPASMS [None]
  - MUSCULOSKELETAL STIFFNESS [None]
  - MYALGIA [None]
  - NECK PAIN [None]
  - OEDEMA PERIPHERAL [None]
  - PAIN [None]
  - RED BLOOD CELL SEDIMENTATION RATE INCREASED [None]
